FAERS Safety Report 7359915-7 (Version None)
Quarter: 2011Q1

REPORT INFORMATION
  Report Type: 
  Country: None (occurrence: None)
  Receive Date: 20110317
  Receipt Date: 20110317
  Transmission Date: 20110831
  Serious: Yes (Other)
  Sender: FDA-Public Use
  Company Number: IL-PFIZER INC-2011058629

PATIENT
  Age: 40 Year
  Sex: Male

DRUGS (3)
  1. CHAMPIX [Suspect]
     Indication: SMOKING CESSATION THERAPY
     Dosage: 1 MG, 2X/DAY
     Route: 048
     Dates: end: 20110308
  2. ELTROXIN [Concomitant]
     Dosage: 50 UG, 1X/DAY
  3. TESTOSTERONE [Concomitant]
     Dosage: 250 MG, MONTHLY

REACTIONS (1)
  - HEPATIC ENZYME INCREASED [None]
